FAERS Safety Report 8840656 (Version 1)
Quarter: 2012Q4

REPORT INFORMATION
  Report Type: 
  Country: US (occurrence: US)
  Receive Date: 20121015
  Receipt Date: 20121015
  Transmission Date: 20130627
  Serious: No
  Sender: FDA-Public Use
  Company Number: US-PFIZER INC-2012255398

PATIENT
  Age: 85 Year
  Sex: Male

DRUGS (1)
  1. ACCUPRIL [Suspect]
     Dosage: 20 mg, UNK

REACTIONS (1)
  - Hearing impaired [Unknown]
